FAERS Safety Report 5658662-7 (Version None)
Quarter: 2008Q1

REPORT INFORMATION
  Report Type: 
  Country: None (occurrence: None)
  Receive Date: 20080310
  Receipt Date: 20070427
  Transmission Date: 20080703
  Serious: No
  Sender: FDA-Public Use
  Company Number: US-BAYER-200710917BCC

PATIENT
  Age: 86 Year
  Sex: Female
  Weight: 91 kg

DRUGS (9)
  1. ALEVE [Suspect]
     Indication: ARTHRITIS
     Dosage: TOTAL DAILY DOSE: 440 MG  UNIT DOSE: 220 MG
     Route: 048
     Dates: end: 20070301
  2. FUROSEMIDE [Concomitant]
     Route: 048
  3. KLOR-CON POTASSIUM [Concomitant]
  4. NOVOLIN NPH HUMAN [Concomitant]
  5. MINITRAN PATCH [Concomitant]
     Route: 062
  6. BENICAR [Concomitant]
     Route: 048
  7. MIRTAZAPINE [Concomitant]
     Route: 048
  8. ALPRAZOLAM [Concomitant]
     Route: 048
  9. AMBIEN CR [Concomitant]
     Route: 048

REACTIONS (3)
  - OEDEMA PERIPHERAL [None]
  - SECRETION DISCHARGE [None]
  - WEIGHT INCREASED [None]
